FAERS Safety Report 10398344 (Version 6)
Quarter: 2015Q1

REPORT INFORMATION
  Report Type: Spontaneous
  Country: IT (occurrence: IT)
  Receive Date: 20140821
  Receipt Date: 20150203
  Transmission Date: 20150720
  Serious: Yes (Hospitalization, Other)
  Sender: FDA-Public Use
  Company Number: IT-JNJFOC-20140810268

PATIENT
  Age: 51 Year
  Sex: Male

DRUGS (5)
  1. CARBAMAZEPINA [Suspect]
     Active Substance: CARBAMAZEPINE
     Indication: EPILEPSY
     Route: 048
  2. TOPAMAX [Suspect]
     Active Substance: TOPIRAMATE
     Indication: EPILEPSY
     Route: 048
  3. TOPAMAX [Suspect]
     Active Substance: TOPIRAMATE
     Indication: EPILEPSY
     Route: 048
     Dates: start: 20140810, end: 20140810
  4. CARBAMAZEPINA [Suspect]
     Active Substance: CARBAMAZEPINE
     Indication: EPILEPSY
     Route: 048
     Dates: start: 20140810, end: 20140810
  5. VENLAFAXINE [Concomitant]
     Active Substance: VENLAFAXINE HYDROCHLORIDE
     Indication: EPILEPSY
     Route: 065

REACTIONS (4)
  - Drug abuse [Unknown]
  - Intentional overdose [Unknown]
  - Bradyphrenia [Unknown]
  - Suicide attempt [Unknown]

NARRATIVE: CASE EVENT DATE: 20140810
